FAERS Safety Report 7365973-6 (Version None)
Quarter: 2011Q1

REPORT INFORMATION
  Report Type: 
  Country: None (occurrence: None)
  Receive Date: 20110322
  Receipt Date: 20110315
  Transmission Date: 20110831
  Serious: Yes (Hospitalization)
  Sender: FDA-Public Use
  Company Number: US-US-EMD SERONO, INC.-235932K09USA

PATIENT
  Sex: Female
  Weight: 112 kg

DRUGS (8)
  1. LISINOPRIL [Concomitant]
     Indication: HYPERTENSION
  2. PO STEROIDS [Concomitant]
     Indication: MULTIPLE SCLEROSIS RELAPSE
  3. REBIF [Suspect]
     Route: 058
     Dates: start: 20110301
  4. ZANAFLEX [Concomitant]
     Indication: MUSCLE SPASTICITY
     Dates: start: 20070101
  5. REBIF [Suspect]
     Indication: MULTIPLE SCLEROSIS
     Route: 058
     Dates: start: 20090201, end: 20090701
  6. VALIUM [Concomitant]
     Indication: VERTIGO
  7. SERTRALINE HYDROCHLORIDE [Concomitant]
     Indication: DEPRESSION
     Dates: start: 20090301
  8. OMEPRAZOLE [Concomitant]
     Indication: GASTROOESOPHAGEAL REFLUX DISEASE
     Dates: start: 20090401

REACTIONS (5)
  - OXYGEN SATURATION DECREASED [None]
  - WOUND INFECTION [None]
  - OESOPHAGEAL SPASM [None]
  - CELLULITIS [None]
  - BLOOD PRESSURE INCREASED [None]
